FAERS Safety Report 5146685-6 (Version None)
Quarter: 2006Q4

REPORT INFORMATION
  Report Type: 
  Country: None (occurrence: None)
  Receive Date: 20061109
  Receipt Date: 20060105
  Transmission Date: 20070319
  Serious: Yes (Hospitalization)
  Sender: FDA-Public Use
  Company Number: US-ALLERGAN-200600131

PATIENT
  Sex: Female
  Weight: 79.091 kg

DRUGS (9)
  1. LEVOTHYROXINE SODIUM [Concomitant]
     Indication: THYROID DISORDER
     Route: 048
  2. PROZAC [Concomitant]
     Indication: DEPRESSION
     Route: 048
  3. NORTRIPTYLINE HCL [Concomitant]
     Indication: ANXIETY
     Route: 048
  4. OLUX FOAM [Concomitant]
     Indication: PSORIASIS
  5. ESTROPIPATE [Concomitant]
     Indication: HORMONE REPLACEMENT THERAPY
     Route: 048
  6. TAZORAC [Suspect]
     Indication: PSORIASIS
     Dosage: APPLIED TO LEGS AND ELBOWS
     Route: 061
     Dates: start: 20051010, end: 20051101
  7. ATENOLOL [Concomitant]
     Indication: BLOOD PRESSURE
     Route: 048
  8. ALPRAZOLAM [Concomitant]
     Indication: PANIC ATTACK
     Route: 048
  9. PROTOPIC [Concomitant]
     Indication: PSORIASIS

REACTIONS (17)
  - AORTIC DISSECTION [None]
  - BLISTER [None]
  - CHOLECYSTITIS [None]
  - CHOLECYSTITIS ACUTE [None]
  - CHOLECYSTITIS CHRONIC [None]
  - CHOLELITHIASIS [None]
  - CONDITION AGGRAVATED [None]
  - CONTUSION [None]
  - ERYTHEMA [None]
  - HYPERSENSITIVITY [None]
  - PAIN OF SKIN [None]
  - PLATELET COUNT INCREASED [None]
  - PRURITUS [None]
  - PSORIASIS [None]
  - SKIN BURNING SENSATION [None]
  - SKIN INFECTION [None]
  - WHITE BLOOD CELL COUNT INCREASED [None]
